FAERS Safety Report 6860762-0 (Version None)
Quarter: 2010Q3

REPORT INFORMATION
  Report Type: 
  Country: None (occurrence: None)
  Receive Date: 20100719
  Receipt Date: 20100719
  Transmission Date: 20110219
  Serious: Yes (Other)
  Sender: FDA-Public Use
  Company Number: None

PATIENT
  Age: 63 Year
  Sex: Male
  Weight: 79.3795 kg

DRUGS (1)
  1. ZYRTEC [Suspect]
     Indication: SEASONAL ALLERGY
     Dosage: 10MG ONCE PER DAY PO
     Route: 048
     Dates: start: 20100417, end: 20100515

REACTIONS (7)
  - DRUG HYPERSENSITIVITY [None]
  - DRUG WITHDRAWAL SYNDROME [None]
  - DYSURIA [None]
  - INSOMNIA [None]
  - NO THERAPEUTIC RESPONSE [None]
  - PRODUCT LABEL ISSUE [None]
  - PRURITUS [None]
